FAERS Safety Report 7591947 (Version 2)
Quarter: 2013Q3

REPORT INFORMATION
  Report Type: Report from Study
  Country: US (occurrence: US)
  Receive Date: 20100917
  Receipt Date: 20130913
  Transmission Date: 20140515
  Serious: Yes (Other)
  Sender: FDA-Public Use
  Company Number: US-ASTRAZENECA-2010SE33144

PATIENT
  Age: 59 Year
  Sex: Female
  Weight: 70.8 kg

DRUGS (24)
  1. SEROQUEL [Suspect]
     Indication: BIPOLAR DISORDER
     Route: 048
     Dates: start: 2007
  2. SEROQUEL [Suspect]
     Indication: MAJOR DEPRESSION
     Route: 048
     Dates: start: 2007
  3. SEROQUEL [Suspect]
     Indication: OBSESSIVE-COMPULSIVE DISORDER
     Route: 048
     Dates: start: 2007
  4. SEROQUEL [Suspect]
     Indication: POST-TRAUMATIC STRESS DISORDER
     Route: 048
     Dates: start: 2007
  5. SEROQUEL [Suspect]
     Indication: BIPOLAR I DISORDER
     Route: 048
     Dates: start: 2007
  6. SEROQUEL [Suspect]
     Indication: BIPOLAR DISORDER
     Route: 048
     Dates: start: 201309
  7. SEROQUEL [Suspect]
     Indication: MAJOR DEPRESSION
     Route: 048
     Dates: start: 201309
  8. SEROQUEL [Suspect]
     Indication: OBSESSIVE-COMPULSIVE DISORDER
     Route: 048
     Dates: start: 201309
  9. SEROQUEL [Suspect]
     Indication: POST-TRAUMATIC STRESS DISORDER
     Route: 048
     Dates: start: 201309
  10. SEROQUEL [Suspect]
     Indication: BIPOLAR I DISORDER
     Route: 048
     Dates: start: 201309
  11. SEROQUEL [Suspect]
     Indication: BIPOLAR DISORDER
     Route: 048
     Dates: start: 201309
  12. SEROQUEL [Suspect]
     Indication: MAJOR DEPRESSION
     Route: 048
     Dates: start: 201309
  13. SEROQUEL [Suspect]
     Indication: OBSESSIVE-COMPULSIVE DISORDER
     Route: 048
     Dates: start: 201309
  14. SEROQUEL [Suspect]
     Indication: POST-TRAUMATIC STRESS DISORDER
     Route: 048
     Dates: start: 201309
  15. SEROQUEL [Suspect]
     Indication: BIPOLAR I DISORDER
     Route: 048
     Dates: start: 201309
  16. ALBUTEROL [Concomitant]
     Indication: ASTHMA
     Dosage: PRN
  17. TIZANIDINE [Concomitant]
     Indication: MULTIPLE SCLEROSIS
  18. LAMICTAL [Concomitant]
  19. ABILIFY [Concomitant]
  20. CLONAZEPAM [Concomitant]
  21. WELLBUTRIN [Concomitant]
  22. FEXOFENADINE [Concomitant]
  23. SIMVASTATIN [Concomitant]
     Indication: BLOOD CHOLESTEROL
  24. LEVOTHYROXINE [Concomitant]
     Indication: THYROID DISORDER

REACTIONS (13)
  - Fall [Unknown]
  - Meniscus injury [Unknown]
  - Spinal fracture [Unknown]
  - Insomnia [Unknown]
  - Hallucination, auditory [Unknown]
  - Hallucination, visual [Unknown]
  - Depression [Unknown]
  - Back pain [Unknown]
  - Multiple sclerosis [Unknown]
  - Memory impairment [Unknown]
  - Drug dose omission [Unknown]
  - Intentional drug misuse [Unknown]
  - Therapeutic response unexpected [Unknown]
